FAERS Safety Report 17609526 (Version 9)
Quarter: 2020Q2

REPORT INFORMATION
  Report Type: Spontaneous
  Country: FR (occurrence: FR)
  Receive Date: 20200401
  Receipt Date: 20200618
  Transmission Date: 20200713
  Serious: Yes (Other)
  Sender: FDA-Public Use
  Company Number: FR-PFIZER INC-2020133088

PATIENT
  Age: 41 Year
  Sex: Female
  Weight: 59 kg

DRUGS (12)
  1. ETOPOSIDE. [Suspect]
     Active Substance: ETOPOSIDE
     Indication: LYMPHOMA
     Dosage: 150 MG, 1X/DAY
     Route: 042
     Dates: start: 20200228, end: 20200228
  2. FOLINATE DE CALCIUM [Suspect]
     Active Substance: LEUCOVORIN CALCIUM
     Indication: LYMPHOMA
     Dosage: 25 MG, 1X/DAY
     Route: 042
     Dates: start: 20200228, end: 20200302
  3. POLARAMINE [Suspect]
     Active Substance: DEXCHLORPHENIRAMINE MALEATE
     Indication: PROPHYLAXIS
     Dosage: 2 MG, 1X/DAY (ONE DOSAGE FORM)
     Route: 048
     Dates: start: 20200227, end: 20200227
  4. LANSOPRAZOLE. [Suspect]
     Active Substance: LANSOPRAZOLE
     Dosage: 15 MG, 1X/DAY
     Route: 048
     Dates: start: 20200221, end: 20200309
  5. METHYLPREDNISOLONE SODIUM SUCCINATE. [Suspect]
     Active Substance: METHYLPREDNISOLONE SODIUM SUCCINATE
     Indication: CHEMOTHERAPY
     Dosage: 40 MG, 1X/DAY
     Route: 042
     Dates: start: 20200227, end: 20200227
  6. OLANZAPINE. [Suspect]
     Active Substance: OLANZAPINE
     Indication: MANIA
     Dosage: 5 MG, 1X/DAY
     Route: 048
     Dates: start: 20200117, end: 20200224
  7. METHOTREXATE. [Suspect]
     Active Substance: METHOTREXATE
     Dosage: 4750 MG, 1X/DAY
     Route: 042
     Dates: start: 20200228, end: 20200228
  8. ZOPHREN [Suspect]
     Active Substance: ONDANSETRON
     Indication: PROPHYLAXIS
     Dosage: 16 MG, 1X/DAY
     Route: 048
     Dates: start: 20200227, end: 20200229
  9. PREDNISOLONE. [Suspect]
     Active Substance: PREDNISOLONE
     Indication: LYMPHOMA
     Dosage: 100 MG, UNK
     Route: 042
     Dates: start: 20200227, end: 20200302
  10. CARMUSTINE. [Suspect]
     Active Substance: CARMUSTINE
     Indication: LYMPHOMA
     Dosage: 150 MG, 1X/DAY
     Route: 042
     Dates: start: 20200229, end: 20200229
  11. PARACETAMOL [Suspect]
     Active Substance: ACETAMINOPHEN
     Indication: PAIN
     Dosage: 500 MG, 1X/DAY
     Route: 048
     Dates: start: 20200227, end: 20200227
  12. RITUXIMAB. [Suspect]
     Active Substance: RITUXIMAB
     Indication: LYMPHOMA
     Dosage: 600 MG, 1X/DAY
     Route: 042
     Dates: start: 20200227, end: 20200227

REACTIONS (1)
  - Hepatocellular injury [Recovered/Resolved]

NARRATIVE: CASE EVENT DATE: 20200301
